FAERS Safety Report 7356083-2 (Version None)
Quarter: 2011Q1

REPORT INFORMATION
  Report Type: 
  Country: None (occurrence: None)
  Receive Date: 20110316
  Receipt Date: 20110308
  Transmission Date: 20110831
  Serious: Yes (Other)
  Sender: FDA-Public Use
  Company Number: JP-BAXTER-2011BH006112

PATIENT
  Sex: Male

DRUGS (2)
  1. DIANEAL [Suspect]
     Indication: PERITONEAL DIALYSIS
     Route: 065
  2. DIANEAL [Suspect]
     Indication: RENAL FAILURE CHRONIC
     Route: 065

REACTIONS (1)
  - LOSS OF CONSCIOUSNESS [None]
